FAERS Safety Report 15220835 (Version 1)
Quarter: 2018Q3

REPORT INFORMATION
  Report Type: Spontaneous
  Country: US (occurrence: US)
  Receive Date: 20180704
  Receipt Date: 20180704
  Transmission Date: 20181010
  Serious: Yes (Other)
  Sender: FDA-Public Use
  Company Number: None

PATIENT
  Age: 30 Year
  Sex: Female
  Weight: 60.75 kg

DRUGS (1)
  1. CIPROFLOXACIN HCL 500 MG TAN [Suspect]
     Active Substance: CIPROFLOXACIN HYDROCHLORIDE
     Indication: URINARY TRACT INFECTION
     Dosage: ?          QUANTITY:1 CAPSULE(S);?
     Route: 048
     Dates: start: 20180626, end: 20180627

REACTIONS (7)
  - Anxiety [None]
  - Myalgia [None]
  - Pain in extremity [None]
  - Arthralgia [None]
  - Eye pain [None]
  - Tendon pain [None]
  - Joint noise [None]

NARRATIVE: CASE EVENT DATE: 20180627
